FAERS Safety Report 12835739 (Version 1)
Quarter: 2016Q4

REPORT INFORMATION
  Report Type: Other
  Country: US (occurrence: US)
  Receive Date: 20161011
  Receipt Date: 20161011
  Transmission Date: 20170207
  Serious: No
  Sender: FDA-Public Use
  Company Number: US-TRIS PHARMA, INC.-1058185

PATIENT
  Age: 33 Year
  Sex: Female
  Weight: 79.36 kg

DRUGS (1)
  1. IBUPROFEN ORAL SUSPENSION DROPS [Suspect]
     Active Substance: IBUPROFEN
     Route: 048
     Dates: start: 20150911, end: 20150911

REACTIONS (3)
  - Hypoaesthesia oral [None]
  - Off label use [None]
  - Oral discomfort [None]

NARRATIVE: CASE EVENT DATE: 20150911
